FAERS Safety Report 8693032 (Version 2)
Quarter: 2012Q4

REPORT INFORMATION
  Report Type: 
  Country: US (occurrence: US)
  Receive Date: 20120730
  Receipt Date: 20121003
  Transmission Date: 20130627
  Serious: Yes (Other)
  Sender: FDA-Public Use
  Company Number: US-ASTRAZENECA-2010SE30084

PATIENT
  Age: 54 Year
  Sex: Male
  Weight: 74.8 kg

DRUGS (40)
  1. SYMBICORT [Suspect]
     Indication: ASTHMA
     Dosage: 160/4.5 MCG TWO PUFF TWICE A DAY
     Route: 055
     Dates: start: 2009
  2. SYMBICORT [Suspect]
     Indication: CHRONIC OBSTRUCTIVE PULMONARY DISEASE
     Dosage: 160/4.5 MCG TWO PUFF TWICE A DAY
     Route: 055
     Dates: start: 2009
  3. SYMBICORT [Suspect]
     Indication: ASTHMA
     Dosage: 160/4.5 MCG TWO PUFF TWICE A DAY
     Route: 055
     Dates: start: 2011
  4. SYMBICORT [Suspect]
     Indication: CHRONIC OBSTRUCTIVE PULMONARY DISEASE
     Dosage: 160/4.5 MCG TWO PUFF TWICE A DAY
     Route: 055
     Dates: start: 2011
  5. SYMBICORT [Suspect]
     Indication: ASTHMA
     Route: 055
  6. SYMBICORT [Suspect]
     Indication: CHRONIC OBSTRUCTIVE PULMONARY DISEASE
     Route: 055
  7. SYMBICORT [Suspect]
     Indication: ASTHMA
     Route: 055
  8. SYMBICORT [Suspect]
     Indication: CHRONIC OBSTRUCTIVE PULMONARY DISEASE
     Route: 055
  9. LISINOPRIL [Suspect]
     Route: 048
  10. PRILOSEC OTC [Suspect]
     Route: 048
  11. SEROQUEL [Suspect]
     Indication: ANXIETY
     Route: 048
  12. CRESTOR [Suspect]
     Indication: BLOOD CHOLESTEROL INCREASED
     Route: 048
  13. OXYGEN [Concomitant]
     Dosage: THREE LITRES AND FOUR LITRES WITH WALKING
  14. MUCINEX [Concomitant]
  15. ALBUTEROL INHALER [Concomitant]
     Dosage: DAILY
     Route: 055
  16. SPIRIVA [Concomitant]
     Dosage: DAILY
  17. GENTAMICIN [Concomitant]
     Dosage: THIRD WEEK OF MONTH
  18. BACTRIM DS [Concomitant]
  19. EFFEXOR XR [Concomitant]
  20. FLOMAX [Concomitant]
  21. ROBAXIN [Concomitant]
  22. SINGULAIR [Concomitant]
  23. LORATABS [Concomitant]
  24. PEPCID [Concomitant]
     Dosage: DAILY
  25. TRAVATON [Concomitant]
  26. ATIVAN [Concomitant]
  27. BABY ASPIRIN [Concomitant]
  28. MOBIC [Concomitant]
  29. VITAMIN D [Concomitant]
     Dosage: 5000 UNITS
  30. FISH OIL [Concomitant]
  31. FENOFIBRATE [Concomitant]
  32. NEURONTIN [Concomitant]
  33. NASONEX [Concomitant]
  34. MYCELEX [Concomitant]
  35. RESTASIS [Concomitant]
     Route: 047
  36. REMERON [Concomitant]
     Indication: SLEEP DISORDER
  37. IMDUR [Concomitant]
  38. NITROGLYCERINE [Concomitant]
     Dosage: AS NEEDED
  39. FLORINES [Concomitant]
  40. RECLAST [Concomitant]
     Indication: OSTEOPOROSIS
     Dosage: ONCE PER YEAR

REACTIONS (28)
  - Ankylosing spondylitis [Unknown]
  - Aortic aneurysm [Unknown]
  - Lung disorder [Unknown]
  - Aphasia [Unknown]
  - Pneumonia [Unknown]
  - Osteoporosis [Unknown]
  - Depression [Unknown]
  - Dysphagia [Unknown]
  - Pyrexia [Unknown]
  - Asthma [Unknown]
  - Bronchitis [Unknown]
  - Chronic sinusitis [Unknown]
  - Lung infection [Unknown]
  - Arthritis [Unknown]
  - Rheumatoid arthritis [Unknown]
  - Gastrooesophageal reflux disease [Unknown]
  - Cataract [Unknown]
  - Glaucoma [Unknown]
  - Sleep disorder [Unknown]
  - Carpal tunnel syndrome [Unknown]
  - Nerve compression [Unknown]
  - Back pain [Unknown]
  - Psoriasis [Unknown]
  - Immune system disorder [Unknown]
  - Tachycardia [Unknown]
  - Fibromyalgia [Unknown]
  - Tuberculosis [Unknown]
  - Drug dose omission [Unknown]
